FAERS Safety Report 15928521 (Version 1)
Quarter: 2019Q1

REPORT INFORMATION
  Report Type: Spontaneous
  Country: US (occurrence: US)
  Receive Date: 20190206
  Receipt Date: 20190206
  Transmission Date: 20190417
  Serious: No
  Sender: FDA-Public Use
  Company Number: US-GLAXOSMITHKLINE-US2019GSK020852

PATIENT
  Age: 54 Year
  Sex: Male

DRUGS (4)
  1. OPSUMIT [Concomitant]
     Active Substance: MACITENTAN
     Dosage: UNK
  2. FLOLAN [Suspect]
     Active Substance: EPOPROSTENOL SODIUM
     Indication: PULMONARY ARTERIAL HYPERTENSION
     Dosage: 70 NG/KG/MIN, CO
     Route: 042
     Dates: start: 20180423
  3. TADALAFIL. [Concomitant]
     Active Substance: TADALAFIL
     Dosage: UNK
  4. FLOLAN DILUENT PH 12 SOLUTION FOR INJECTION [Suspect]
     Active Substance: GLYCINE\MANNITOL\SODIUM CHLORIDE
     Indication: PULMONARY ARTERIAL HYPERTENSION
     Dosage: UNK
     Route: 042
     Dates: start: 20180423

REACTIONS (1)
  - Emergency care examination [Unknown]

NARRATIVE: CASE EVENT DATE: 20190201
